FAERS Safety Report 24376290 (Version 1)
Quarter: 2024Q3

REPORT INFORMATION
  Report Type: Spontaneous
  Country: CA (occurrence: CA)
  Receive Date: 20240930
  Receipt Date: 20240930
  Transmission Date: 20241016
  Serious: Yes (Death, Life-Threatening, Hospitalization, Disabling, Other)
  Sender: Haleon PLC
  Company Number: CA-HALEON-2199121

PATIENT
  Age: 44 Year
  Sex: Female
  Weight: 97 kg

DRUGS (34)
  1. DICLOFENAC SODIUM [Suspect]
     Active Substance: DICLOFENAC SODIUM
     Indication: Rheumatoid arthritis
     Dosage: UNK
     Route: 058
  2. DICLOFENAC SODIUM [Suspect]
     Active Substance: DICLOFENAC SODIUM
     Indication: Osteoarthritis
     Dosage: UNK
     Route: 065
  3. DICLOFENAC SODIUM [Suspect]
     Active Substance: DICLOFENAC SODIUM
     Indication: Inflammation
     Dosage: 50 MG
     Route: 065
  4. DICLOFENAC [Suspect]
     Active Substance: DICLOFENAC
     Indication: Product used for unknown indication
     Dosage: UNK
     Route: 065
  5. DICLOFENAC [Suspect]
     Active Substance: DICLOFENAC
     Dosage: UNK
     Route: 047
  6. DICLOFENAC [Suspect]
     Active Substance: DICLOFENAC
     Dosage: UNK
     Route: 065
  7. DICLOFENAC [Suspect]
     Active Substance: DICLOFENAC
     Dosage: UNK
     Route: 065
  8. DICLOFENAC DIETHYLAMINE [Suspect]
     Active Substance: DICLOFENAC DIETHYLAMINE
     Indication: Product used for unknown indication
     Dosage: UNK
     Route: 065
  9. CODEINE PHOSPHATE [Concomitant]
     Active Substance: CODEINE PHOSPHATE
     Indication: Product used for unknown indication
  10. CODEINE PHOSPHATE [Concomitant]
     Active Substance: CODEINE PHOSPHATE
     Indication: Product used for unknown indication
  11. MYCOPHENOLATE MOFETIL [Suspect]
     Active Substance: MYCOPHENOLATE MOFETIL
     Indication: Product used for unknown indication
     Dosage: UNK
     Route: 065
  12. MOXIFLOXACIN [Suspect]
     Active Substance: MOXIFLOXACIN
     Indication: Product used for unknown indication
     Dosage: UNK
     Route: 058
  13. COSENTYX [Suspect]
     Active Substance: SECUKINUMAB
     Indication: Rheumatoid arthritis
     Dosage: UNK
     Route: 005
  14. COSENTYX [Suspect]
     Active Substance: SECUKINUMAB
     Indication: Psoriatic arthropathy
     Dosage: UNK
     Route: 065
  15. COSENTYX [Suspect]
     Active Substance: SECUKINUMAB
     Dosage: UNK
     Route: 065
  16. COSENTYX [Suspect]
     Active Substance: SECUKINUMAB
     Dosage: UNK
     Route: 005
  17. COSENTYX [Concomitant]
     Active Substance: SECUKINUMAB
     Indication: Product used for unknown indication
  18. MAGNESIUM [Concomitant]
     Active Substance: MAGNESIUM
     Indication: Product used for unknown indication
  19. DEXAMETHASONE [Concomitant]
     Active Substance: DEXAMETHASONE
     Indication: Product used for unknown indication
  20. ERGOCALCIFEROL [Concomitant]
     Active Substance: ERGOCALCIFEROL
     Indication: Product used for unknown indication
  21. GLUCOSAMINE [Concomitant]
     Active Substance: GLUCOSAMINE
     Indication: Product used for unknown indication
  22. LANSOPRAZOLE [Concomitant]
     Active Substance: LANSOPRAZOLE
     Indication: Product used for unknown indication
  23. LEVOTHYROXINE SODIUM [Concomitant]
     Active Substance: LEVOTHYROXINE SODIUM
     Indication: Product used for unknown indication
  24. LISINOPRIL [Concomitant]
     Active Substance: LISINOPRIL
     Indication: Product used for unknown indication
  25. LORAZEPAM [Concomitant]
     Active Substance: LORAZEPAM
     Indication: Product used for unknown indication
  26. ACETAMINOPHEN\CAFFEINE [Concomitant]
     Active Substance: ACETAMINOPHEN\CAFFEINE
     Indication: Product used for unknown indication
  27. PIROXICAM [Concomitant]
     Active Substance: PIROXICAM
     Indication: Product used for unknown indication
  28. PREDNISOLONE [Concomitant]
     Active Substance: PREDNISOLONE
     Indication: Product used for unknown indication
  29. QUETIAPINE [Concomitant]
     Active Substance: QUETIAPINE
     Indication: Product used for unknown indication
  30. CODEINE [Concomitant]
     Active Substance: CODEINE
     Indication: Product used for unknown indication
  31. RAMIPRIL [Concomitant]
     Active Substance: RAMIPRIL
     Indication: Product used for unknown indication
  32. RISEDRONATE SODIUM [Concomitant]
     Active Substance: RISEDRONATE SODIUM
     Indication: Product used for unknown indication
  33. FISH OIL [Concomitant]
     Active Substance: FISH OIL
     Indication: Product used for unknown indication
  34. ZESTRIL [Concomitant]
     Active Substance: LISINOPRIL
     Indication: Product used for unknown indication

REACTIONS (85)
  - Liver injury [Fatal]
  - Vomiting [Fatal]
  - Bursitis [Fatal]
  - Lower limb fracture [Fatal]
  - Musculoskeletal pain [Fatal]
  - Therapy non-responder [Fatal]
  - Autoimmune disorder [Fatal]
  - Hypertension [Fatal]
  - Joint range of motion decreased [Fatal]
  - Urticaria [Fatal]
  - Anxiety [Fatal]
  - Swollen joint count increased [Fatal]
  - Chest pain [Fatal]
  - Intentional product use issue [Fatal]
  - Mobility decreased [Fatal]
  - Abdominal discomfort [Fatal]
  - Gait inability [Fatal]
  - Deep vein thrombosis postoperative [Fatal]
  - Contraindicated product administered [Fatal]
  - Rheumatoid factor positive [Fatal]
  - Type 2 diabetes mellitus [Fatal]
  - Dizziness [Fatal]
  - Muscle spasticity [Fatal]
  - Sciatica [Fatal]
  - Musculoskeletal stiffness [Fatal]
  - Osteoarthritis [Fatal]
  - General physical health deterioration [Fatal]
  - Inflammation [Fatal]
  - Lung disorder [Fatal]
  - Psoriatic arthropathy [Fatal]
  - Road traffic accident [Fatal]
  - Product use issue [Fatal]
  - Peripheral venous disease [Fatal]
  - Knee arthroplasty [Fatal]
  - Drug hypersensitivity [Fatal]
  - Hip arthroplasty [Fatal]
  - Treatment failure [Fatal]
  - Decreased appetite [Fatal]
  - Prescribed overdose [Fatal]
  - Dry mouth [Fatal]
  - Respiratory disorder [Fatal]
  - C-reactive protein abnormal [Fatal]
  - Paraesthesia [Fatal]
  - Rheumatic fever [Fatal]
  - Fibromyalgia [Fatal]
  - Night sweats [Fatal]
  - Lip dry [Fatal]
  - Facet joint syndrome [Fatal]
  - Headache [Fatal]
  - Injury [Fatal]
  - C-reactive protein [Fatal]
  - Liver disorder [Fatal]
  - Muscle spasms [Fatal]
  - Oedema [Fatal]
  - Obesity [Fatal]
  - Malaise [Fatal]
  - Asthma [Fatal]
  - Abdominal pain upper [Fatal]
  - Alopecia [Fatal]
  - Anti-cyclic citrullinated peptide antibody positive [Fatal]
  - Arthralgia [Fatal]
  - Arthropathy [Fatal]
  - Asthenia [Fatal]
  - Blister [Fatal]
  - Blood cholesterol increased [Fatal]
  - Condition aggravated [Fatal]
  - Confusional state [Fatal]
  - Contusion [Fatal]
  - Diarrhoea [Fatal]
  - Discomfort [Fatal]
  - Drug ineffective [Fatal]
  - Drug intolerance [Fatal]
  - Duodenal ulcer perforation [Fatal]
  - Dyspnoea [Fatal]
  - Fatigue [Fatal]
  - Folliculitis [Fatal]
  - Gastrointestinal disorder [Fatal]
  - Glossodynia [Fatal]
  - Hand deformity [Fatal]
  - Helicobacter infection [Fatal]
  - Hepatic enzyme increased [Fatal]
  - Hypersensitivity [Fatal]
  - Hypoaesthesia [Fatal]
  - Ill-defined disorder [Fatal]
  - Impaired healing [Fatal]
